FAERS Safety Report 8188250-2 (Version None)
Quarter: 2012Q1

REPORT INFORMATION
  Report Type: 
  Country: None (occurrence: None)
  Receive Date: 20120306
  Receipt Date: 20120228
  Transmission Date: 20120608
  Serious: Yes (Hospitalization, Other)
  Sender: FDA-Public Use
  Company Number: US-PFIZER INC-2012017507

PATIENT
  Sex: Female
  Weight: 44 kg

DRUGS (15)
  1. COUMADIN [Concomitant]
     Indication: ATRIAL FIBRILLATION
     Dosage: 2.5MG, M W F
  2. PANTOPRAZOLE [Concomitant]
     Dosage: 40MG, UNK
  3. SLOW-FE [Concomitant]
     Dosage: 47.5MG, UNK
  4. VITAMIN D [Concomitant]
     Dosage: 2,000UNITS, UNK
  5. REVATIO [Suspect]
     Indication: PULMONARY ARTERIAL HYPERTENSION
  6. SYNTHROID [Concomitant]
     Indication: THYROID DISORDER
     Dosage: 75MCG, UNK
  7. CALTRATE 600 +D PLUS [Concomitant]
  8. TOPROL-XL [Concomitant]
     Indication: HYPERTENSION
     Dosage: UNK
  9. LASIX [Concomitant]
     Dosage: 20 MG, THREE TABLETS ONCE DAILY
     Route: 048
  10. LATANOPROST [Concomitant]
     Dosage: 0.005%, EYE DROPS
  11. DIOVAN [Concomitant]
     Indication: HYPERTENSION
     Dosage: 160MG, UNK
  12. COUMADIN [Concomitant]
     Dosage: 5MG, T T S S
  13. REVATIO [Suspect]
     Indication: HYPERTENSION
     Dosage: 20 MG, 3X/DAY
     Route: 048
     Dates: start: 20111211
  14. ALPRAZOLAM [Concomitant]
     Dosage: 0.25MG, UNK
  15. METOPROLOL SUCCINATE [Concomitant]
     Dosage: 50MG, 24 HR

REACTIONS (6)
  - ABDOMINAL DISCOMFORT [None]
  - HEADACHE [None]
  - DYSPEPSIA [None]
  - FLUSHING [None]
  - HEART RATE INCREASED [None]
  - PALPITATIONS [None]
